FAERS Safety Report 12370241 (Version 2)
Quarter: 2016Q2

REPORT INFORMATION
  Report Type: Report from Study
  Country: JP (occurrence: JP)
  Receive Date: 20160516
  Receipt Date: 20160527
  Transmission Date: 20160815
  Serious: Yes (Death, Other)
  Sender: FDA-Public Use
  Company Number: JP-BRISTOL-MYERS SQUIBB COMPANY-BMS-2016-037576

PATIENT
  Age: 65 Year
  Sex: Male

DRUGS (6)
  1. NIVOLUMAB [Suspect]
     Active Substance: NIVOLUMAB
     Indication: NON-SMALL CELL LUNG CANCER
     Dosage: 3 MG/KG, 200MG
     Route: 041
     Dates: start: 20160218, end: 20160218
  2. NIVOLUMAB [Suspect]
     Active Substance: NIVOLUMAB
     Dosage: 3 MG/KG, 200MG
     Route: 041
     Dates: start: 20160324, end: 20160324
  3. PROTECADIN [Concomitant]
     Active Substance: LAFUTIDINE
     Indication: PRODUCT USED FOR UNKNOWN INDICATION
     Route: 065
  4. NAIXAN                             /00256201/ [Concomitant]
     Active Substance: NAPROXEN
     Indication: PRODUCT USED FOR UNKNOWN INDICATION
     Route: 065
  5. LYRICA [Concomitant]
     Active Substance: PREGABALIN
     Indication: PRODUCT USED FOR UNKNOWN INDICATION
     Dosage: UNK
     Route: 065
  6. NIVOLUMAB [Suspect]
     Active Substance: NIVOLUMAB
     Dosage: 3 MG/KG, 200MG
     Route: 041
     Dates: start: 20160303, end: 20160303

REACTIONS (2)
  - Haemoptysis [Fatal]
  - Lung infection [Unknown]

NARRATIVE: CASE EVENT DATE: 20160324
